FAERS Safety Report 4881610-4 (Version None)
Quarter: 2005Q4

REPORT INFORMATION
  Report Type: 
  Country: None (occurrence: None)
  Receive Date: 20051201
  Receipt Date: 20050928
  Transmission Date: 20060501
  Serious: No
  Sender: FDA-Public Use
  Company Number: 2005PV002619

PATIENT
  Age: 40 Year
  Sex: Female

DRUGS (1)
  1. BYETTA [Suspect]
     Dosage: SC
     Route: 058

REACTIONS (3)
  - INJECTION SITE IRRITATION [None]
  - INJECTION SITE PRURITUS [None]
  - INJECTION SITE SWELLING [None]
